FAERS Safety Report 11855618 (Version 1)
Quarter: 2015Q4

REPORT INFORMATION
  Report Type: Spontaneous
  Country: US (occurrence: US)
  Receive Date: 20151221
  Receipt Date: 20151221
  Transmission Date: 20160305
  Serious: No
  Sender: FDA-Public Use
  Company Number: US-PERRIGO-15US005935

PATIENT
  Age: 80 Year
  Sex: Female
  Weight: 45.35 kg

DRUGS (2)
  1. BACITRACIN OPHTHALMIC USP 500U/G 0S4 [Suspect]
     Active Substance: BACITRACIN
     Indication: EYE INFECTION
     Dosage: SMALL AMOUNT TO BOTH EYELIDS, QD
     Route: 047
     Dates: start: 20150605
  2. OPHTHALMOLOGICALS NOS [Suspect]
     Active Substance: UNSPECIFIED INGREDIENT
     Indication: ROUTINE HEALTH MAINTENANCE
     Dosage: SMALL AMOUNT, QD
     Route: 061
     Dates: start: 20150605

REACTIONS (2)
  - Visual acuity reduced [Unknown]
  - Eyelids pruritus [Unknown]

NARRATIVE: CASE EVENT DATE: 20150605
